FAERS Safety Report 19918563 (Version 1)
Quarter: 2021Q4

REPORT INFORMATION
  Report Type: Spontaneous
  Country: RU (occurrence: RU)
  Receive Date: 20211005
  Receipt Date: 20211005
  Transmission Date: 20220303
  Serious: Yes (Congenital Anomaly)
  Sender: FDA-Public Use
  Company Number: RU-NOVARTISPH-NVSC2021RU213076

PATIENT
  Sex: Female

DRUGS (2)
  1. CANAKINUMAB [Suspect]
     Active Substance: CANAKINUMAB
     Indication: Tumour necrosis factor receptor-associated periodic syndrome
     Dosage: 150 MG, Q2MO (WITH AN INTERVAL OF 8 WEEK)
     Route: 065
  2. CANAKINUMAB [Suspect]
     Active Substance: CANAKINUMAB
     Dosage: 150 MG, Q4W (INCREASED TO 1 INJECTION IN 4 WEEKS)
     Route: 065
     Dates: start: 201512

REACTIONS (3)
  - Tumour necrosis factor receptor-associated periodic syndrome [Unknown]
  - Product supply issue [Unknown]
  - Inappropriate schedule of product administration [Unknown]

NARRATIVE: CASE EVENT DATE: 20181101
